FAERS Safety Report 26114914 (Version 2)
Quarter: 2025Q4

REPORT INFORMATION
  Report Type: Report from Study
  Country: CA (occurrence: CA)
  Receive Date: 20251203
  Receipt Date: 20251211
  Transmission Date: 20260118
  Serious: Yes (Hospitalization)
  Sender: CELLTRION
  Company Number: CA-CELLTRION INC.-2025CA043172

PATIENT

DRUGS (12)
  1. INFLIXIMAB-DYYB [Suspect]
     Active Substance: INFLIXIMAB-DYYB
     Indication: Crohn^s disease
     Dosage: MAINTENANCE - 7 MG/KG - SC  (SUBCUTANEOUS) EVERY 8 WEEKS
     Route: 042
     Dates: start: 20250729
  2. TRAMADOL [Concomitant]
     Active Substance: TRAMADOL
     Dosage: 50 MG AS  NEEDED
     Route: 048
  3. PANTOPRAZOLE [Concomitant]
     Active Substance: PANTOPRAZOLE
     Dosage: 40 MG QD
     Route: 048
  4. CLONAZEPAM [Concomitant]
     Active Substance: CLONAZEPAM
     Dosage: 1-2 TAB - 0.5 MG AS NEEDED
     Route: 048
  5. CLONIDINE [Concomitant]
     Active Substance: CLONIDINE
     Dosage: 2 TABS
     Route: 048
  6. PENTASA [Concomitant]
     Active Substance: MESALAMINE
     Dosage: 1 G
     Route: 048
  7. CELECOXIB [Concomitant]
     Active Substance: CELECOXIB
     Dosage: QD - 100  MG
     Route: 048
  8. PREMARIN [Concomitant]
     Active Substance: ESTROGENS, CONJUGATED
     Dosage: QD - 0.3  MG
     Route: 048
  9. ROSUVASTATIN [Concomitant]
     Active Substance: ROSUVASTATIN
     Dosage: QD - 10  MG
     Route: 048
  10. VITAMIN B12 [Concomitant]
     Active Substance: CYANOCOBALAMIN
     Dosage: QD - 250  MCG
     Route: 048
  11. ALBUTEROL [Concomitant]
     Active Substance: ALBUTEROL
     Dosage: QID PRN - 2
  12. FLUTICASONE [Concomitant]
     Active Substance: FLUTICASONE
     Dosage: BID - 2

REACTIONS (6)
  - Malaise [Recovering/Resolving]
  - Cough [Recovering/Resolving]
  - Asthenia [Recovering/Resolving]
  - Productive cough [Recovering/Resolving]
  - Intentional dose omission [Recovering/Resolving]
  - Intentional product use issue [Unknown]

NARRATIVE: CASE EVENT DATE: 20251107
